FAERS Safety Report 8499621-9 (Version None)
Quarter: 2012Q3

REPORT INFORMATION
  Report Type: 
  Country: None (occurrence: None)
  Receive Date: 20120710
  Receipt Date: 20120703
  Transmission Date: 20120928
  Serious: Yes (Other)
  Sender: FDA-Public Use
  Company Number: GB-ASTELLAS-2012EU004176

PATIENT
  Sex: Female
  Weight: 78 kg

DRUGS (9)
  1. FLUTICASONE PROPIONATE/SALMETEROL [Concomitant]
     Dosage: UNK
     Route: 050
  2. ASPIRIN [Concomitant]
     Dosage: 75 MG, UID/QD
     Route: 065
  3. PIROXICAM [Concomitant]
     Dosage: 0.5 %, PRN
     Route: 065
  4. LANSOPRAZOLE [Concomitant]
     Dosage: 15 MG, UID/QD
     Route: 065
  5. ACETAMINOPHEN [Concomitant]
     Dosage: UNK MG, TID
     Route: 065
  6. VESICARE [Suspect]
     Dosage: 10 MG, UNKNOWN/D
     Route: 048
     Dates: start: 20120423
  7. GABAPENTIN [Concomitant]
     Dosage: 300 MG, BID
     Route: 065
  8. ALENDRONATE SODIUM [Concomitant]
     Dosage: 70 MG, WEEKLY
     Route: 065
  9. CALCEOS [Concomitant]
     Dosage: 1 DF, BID
     Route: 065

REACTIONS (2)
  - OEDEMA PERIPHERAL [None]
  - CELLULITIS [None]
